FAERS Safety Report 7913583-1 (Version None)
Quarter: 2011Q4

REPORT INFORMATION
  Report Type: 
  Country: None (occurrence: None)
  Receive Date: 20111115
  Receipt Date: 20111111
  Transmission Date: 20120403
  Serious: No
  Sender: FDA-Public Use
  Company Number: US-PFIZER INC-2011277279

PATIENT
  Sex: Female
  Weight: 49.887 kg

DRUGS (1)
  1. IBUPROFEN (ADVIL) [Suspect]
     Indication: OROPHARYNGEAL PAIN
     Dosage: 400 MG, AS NEEDED
     Route: 048
     Dates: start: 20111111, end: 20111111

REACTIONS (2)
  - DRUG INEFFECTIVE [None]
  - EXPIRED DRUG ADMINISTERED [None]
